FAERS Safety Report 8785114 (Version 1)
Quarter: 2012Q4

REPORT INFORMATION
  Report Type: Spontaneous
  Country: US (occurrence: None)
  Receive Date: 20120907
  Receipt Date: 20120907
  Transmission Date: 20130627
  Serious: No
  Sender: FDA-Public Use
  Company Number: None

PATIENT
  Age: 84 Year
  Sex: Female
  Weight: 102.06 kg

DRUGS (1)
  1. PROMACTA [Suspect]
     Indication: IMMUNE-MEDIATED THROMBOCYTOPENIC PURPURA

REACTIONS (1)
  - Diarrhoea [None]
